FAERS Safety Report 8274803-X (Version None)
Quarter: 2012Q2

REPORT INFORMATION
  Report Type: 
  Country: None (occurrence: None)
  Receive Date: 20120409
  Receipt Date: 20120327
  Transmission Date: 20120825
  Serious: Yes (Life-Threatening, Hospitalization)
  Sender: FDA-Public Use
  Company Number: DSM-2012-00367

PATIENT
  Age: 81 Year
  Sex: Male

DRUGS (6)
  1. OLMESARTAN MEDOXOMIL [Suspect]
     Indication: HYPERTENSION
     Dosage: 20 MG, ORAL
     Route: 048
     Dates: start: 20090401, end: 20111024
  2. METFORMIN HCL [Suspect]
     Indication: DIABETES MELLITUS
     Dosage: 2.55 GM, ORAL
     Route: 048
     Dates: end: 20111024
  3. ACETYLSALICYLIC ACID SRT [Suspect]
     Indication: PROPHYLAXIS
     Dosage: 150 MG, ORAL
     Route: 048
     Dates: end: 20111024
  4. REPAGLINIDE [Concomitant]
  5. SIMVASTATINA (SIMVASTATIN) (SIMVASTATIN) [Concomitant]
  6. OMEPRAZOL (OMEPRAZOLE) (OMEPRAZOLE) [Concomitant]

REACTIONS (7)
  - PALLOR [None]
  - COGNITIVE DISORDER [None]
  - DIARRHOEA [None]
  - ESCHERICHIA TEST POSITIVE [None]
  - DRUG INTERACTION [None]
  - DEHYDRATION [None]
  - RENAL FAILURE ACUTE [None]
